FAERS Safety Report 8033943-0 (Version None)
Quarter: 2012Q1

REPORT INFORMATION
  Report Type: 
  Country: None (occurrence: None)
  Receive Date: 20120110
  Receipt Date: 20120103
  Transmission Date: 20120608
  Serious: Yes (Hospitalization)
  Sender: FDA-Public Use
  Company Number: US-US-EMD SERONO, INC.-7104373

PATIENT
  Sex: Female

DRUGS (3)
  1. REBIF [Suspect]
     Indication: PRODUCT USED FOR UNKNOWN INDICATION
     Route: 058
     Dates: start: 20110929
  2. AMPYRA [Concomitant]
  3. REBIF [Suspect]
     Route: 058
     Dates: start: 20110929

REACTIONS (3)
  - INFLUENZA LIKE ILLNESS [None]
  - WOUND COMPLICATION [None]
  - URINARY TRACT INFECTION [None]
